FAERS Safety Report 7385443-9 (Version None)
Quarter: 2011Q1

REPORT INFORMATION
  Report Type: 
  Country: None (occurrence: None)
  Receive Date: 20110330
  Receipt Date: 20101217
  Transmission Date: 20110831
  Serious: No
  Sender: FDA-Public Use
  Company Number: US-AMGEN-USASP2010007439

PATIENT
  Sex: Male
  Weight: 92.063 kg

DRUGS (4)
  1. NPLATE [Suspect]
     Indication: IDIOPATHIC THROMBOCYTOPENIC PURPURA
     Dosage: 102 A?G/KG, QWK
     Route: 058
     Dates: start: 20091202, end: 20100806
  2. IVIGLOB-EX [Concomitant]
     Dosage: UNK
     Dates: start: 20091118
  3. CORTICOSTEROIDS [Concomitant]
     Dosage: UNK
     Dates: start: 20080916
  4. RITUXIMAB [Concomitant]
     Dosage: UNK
     Dates: start: 20091123

REACTIONS (2)
  - MYALGIA [None]
  - ARTHRALGIA [None]
